FAERS Safety Report 16404327 (Version 1)
Quarter: 2019Q3

REPORT INFORMATION
  Report Type: Spontaneous
  Country: US (occurrence: US)
  Receive Date: 20190606
  Receipt Date: 20190606
  Transmission Date: 20191004
  Serious: No
  Sender: FDA-Public Use
  Company Number: None

PATIENT
  Age: 46 Year
  Sex: Female

DRUGS (1)
  1. DULOXETINE DELAYED-RELEASE USP 20MG [Suspect]
     Active Substance: DULOXETINE
     Indication: DEPRESSION
     Dosage: ?          QUANTITY:1 CAPSULE(S);?
     Route: 048
     Dates: start: 20190130, end: 20190606

REACTIONS (7)
  - Abdominal distension [None]
  - Blood glucose decreased [None]
  - Depression [None]
  - Night sweats [None]
  - Product substitution issue [None]
  - Weight increased [None]
  - Breast tenderness [None]

NARRATIVE: CASE EVENT DATE: 20190501
